FAERS Safety Report 8848590 (Version 2)
Quarter: 2015Q1

REPORT INFORMATION
  Report Type: Report from Study
  Country: US (occurrence: US)
  Receive Date: 20121018
  Receipt Date: 20150128
  Transmission Date: 20150721
  Serious: Yes (Other)
  Sender: FDA-Public Use
  Company Number: US-ROCHE-1140818

PATIENT
  Age: 16 Year
  Sex: Male
  Weight: 54.2 kg

DRUGS (2)
  1. PROTROPIN [Suspect]
     Active Substance: SOMATREM
     Indication: BODY HEIGHT BELOW NORMAL
  2. PROTROPIN [Suspect]
     Active Substance: SOMATREM
     Indication: GROWTH RETARDATION
     Dosage: 7 INJECTIONS PER WEEK
     Route: 058
     Dates: start: 19900914

REACTIONS (3)
  - Growth retardation [Unknown]
  - Ligament rupture [Unknown]
  - Drug dose omission [Unknown]

NARRATIVE: CASE EVENT DATE: 19941130
